FAERS Safety Report 16589698 (Version 1)
Quarter: 2019Q3

REPORT INFORMATION
  Report Type: Other
  Country: US (occurrence: US)
  Receive Date: 20190718
  Receipt Date: 20190718
  Transmission Date: 20191004
  Serious: No
  Sender: FDA-Public Use
  Company Number: US-SWEDISH ORPHAN BIOVITRUM-2019US0716

PATIENT
  Age: 60 Year
  Sex: Female

DRUGS (12)
  1. KINERET [Suspect]
     Active Substance: ANAKINRA
     Indication: RHEUMATOID ARTHRITIS
     Route: 058
     Dates: start: 20190315
  2. ARMOUR THYROID [Concomitant]
     Active Substance: THYROID, PORCINE
  3. PROGESTERONE. [Concomitant]
     Active Substance: PROGESTERONE
  4. VALIUM [Concomitant]
     Active Substance: DIAZEPAM
  5. DHEA [Concomitant]
     Active Substance: PRASTERONE
  6. OXYCODONE [Concomitant]
     Active Substance: OXYCODONE
  7. OMEPRAZOLE. [Concomitant]
     Active Substance: OMEPRAZOLE
  8. TRAZODONE [Concomitant]
     Active Substance: TRAZODONE HYDROCHLORIDE
  9. COLCRYS [Concomitant]
     Active Substance: COLCHICINE
  10. TESTOSTERONE. [Concomitant]
     Active Substance: TESTOSTERONE
  11. FISH OIL [Concomitant]
     Active Substance: FISH OIL
  12. ESTRADIOL. [Concomitant]
     Active Substance: ESTRADIOL

REACTIONS (2)
  - Injection site pain [Not Recovered/Not Resolved]
  - Liver function test increased [Unknown]

NARRATIVE: CASE EVENT DATE: 201903
